FAERS Safety Report 7025011-1 (Version None)
Quarter: 2010Q4

REPORT INFORMATION
  Report Type: 
  Country: None (occurrence: None)
  Receive Date: 20101001
  Receipt Date: 20100915
  Transmission Date: 20110411
  Serious: Yes (Hospitalization)
  Sender: FDA-Public Use
  Company Number: US-ROCHE-727837

PATIENT
  Sex: Male
  Weight: 94.8 kg

DRUGS (1)
  1. AVASTIN [Suspect]
     Route: 065
     Dates: start: 20100101, end: 20100901

REACTIONS (2)
  - DIVERTICULITIS [None]
  - INTESTINAL PERFORATION [None]
